FAERS Safety Report 17401929 (Version 2)
Quarter: 2020Q1

REPORT INFORMATION
  Report Type: Spontaneous
  Country: BE (occurrence: BE)
  Receive Date: 20200211
  Receipt Date: 20200324
  Transmission Date: 20200409
  Serious: Yes (Hospitalization, Other)
  Sender: FDA-Public Use
  Company Number: BE-ASTRAZENECA-2020SE18872

PATIENT
  Sex: Female
  Weight: 71 kg

DRUGS (5)
  1. FASENRA [Suspect]
     Active Substance: BENRALIZUMAB
     Dosage: DOSE AND FREQUENCY UNKNOWN
     Route: 058
  2. STERIMAR [Concomitant]
     Active Substance: SEA WATER
     Indication: SINUSITIS
  3. PANTOMED [Concomitant]
     Indication: GASTROOESOPHAGEAL REFLUX DISEASE
  4. LISINOPRIL. [Concomitant]
     Active Substance: LISINOPRIL
     Indication: HYPERTENSION
  5. MOMETASONE [Concomitant]
     Active Substance: MOMETASONE
     Indication: SINUSITIS

REACTIONS (3)
  - Drug ineffective [Unknown]
  - Forced expiratory volume decreased [Unknown]
  - Asthmatic crisis [Unknown]
